FAERS Safety Report 12487533 (Version 1)
Quarter: 2016Q2

REPORT INFORMATION
  Report Type: Spontaneous
  Country: US (occurrence: None)
  Receive Date: 20160621
  Receipt Date: 20160621
  Transmission Date: 20160815
  Serious: Yes (Life-Threatening, Hospitalization)
  Sender: FDA-Public Use
  Company Number: None

PATIENT
  Age: 21 Year
  Sex: Female
  Weight: 56 kg

DRUGS (4)
  1. PRENATAL VITAMINS [Concomitant]
     Active Substance: VITAMINS
  2. ALBUTEROL. [Concomitant]
     Active Substance: ALBUTEROL
  3. IBUPROFEN. [Concomitant]
     Active Substance: IBUPROFEN
  4. GADOBENATE DIMEGLUMINE [Suspect]
     Active Substance: GADOBENATE DIMEGLUMINE
     Indication: NUCLEAR MAGNETIC RESONANCE IMAGING
     Route: 040
     Dates: start: 20160618, end: 20160618

REACTIONS (2)
  - Cardiac arrest [None]
  - Dyspnoea [None]

NARRATIVE: CASE EVENT DATE: 20160618
